FAERS Safety Report 5253949-4 (Version None)
Quarter: 2007Q1

REPORT INFORMATION
  Report Type: 
  Country: None (occurrence: None)
  Receive Date: 20070228
  Receipt Date: 20070228
  Transmission Date: 20070707
  Serious: Yes (Life-Threatening, Hospitalization, Other)
  Sender: FDA-Public Use
  Company Number: None

PATIENT
  Age: 47 Year
  Sex: Female
  Weight: 58.9676 kg

DRUGS (3)
  1. ETODOLAC 800 MG [Suspect]
     Indication: BACK PAIN
     Dosage: 800 MG TWICE DAILY PO
     Route: 048
     Dates: start: 20050126, end: 20050226
  2. ETODOLAC 800 MG [Suspect]
     Indication: BACK PAIN
     Dosage: 800 MG TWICE DAILY PO
     Route: 048
     Dates: start: 20050301, end: 20050318
  3. TRAMADAL [Concomitant]

REACTIONS (4)
  - ACUTE HEPATIC FAILURE [None]
  - LIVER TRANSPLANT [None]
  - PAIN [None]
  - STOMACH DISCOMFORT [None]
